FAERS Safety Report 19425201 (Version 4)
Quarter: 2021Q3

REPORT INFORMATION
  Report Type: Report from Study
  Country: None (occurrence: US)
  Receive Date: 20210616
  Receipt Date: 20210828
  Transmission Date: 20211014
  Serious: Yes (Hospitalization, Other)
  Sender: FDA-Public Use
  Company Number: US-ABBVIE-21K-163-3948637-00

PATIENT
  Age: 33 Year
  Sex: Female
  Weight: 106.69 kg

DRUGS (3)
  1. HUMIRA [Suspect]
     Active Substance: ADALIMUMAB
     Indication: ANKYLOSING SPONDYLITIS
     Dosage: CITRATE FREE
     Route: 058
     Dates: start: 20201016
  2. HUMIRA [Suspect]
     Active Substance: ADALIMUMAB
     Dosage: CITRATE FREE
     Route: 058
     Dates: start: 202107
  3. HUMIRA [Suspect]
     Active Substance: ADALIMUMAB
     Dosage: CITRATE FREE
     Route: 058
     Dates: start: 202011, end: 202106

REACTIONS (12)
  - Pulmonary thrombosis [Recovering/Resolving]
  - Anxiety [Not Recovered/Not Resolved]
  - Adnexal torsion [Not Recovered/Not Resolved]
  - Dyspnoea [Not Recovered/Not Resolved]
  - Headache [Unknown]
  - Procedural pain [Not Recovered/Not Resolved]
  - Chest pain [Not Recovered/Not Resolved]
  - Adnexal torsion [Recovered/Resolved]
  - Ankylosing spondylitis [Not Recovered/Not Resolved]
  - Atrial fibrillation [Recovered/Resolved]
  - Arrhythmia [Not Recovered/Not Resolved]
  - Therapeutic response shortened [Not Recovered/Not Resolved]

NARRATIVE: CASE EVENT DATE: 20210612
